FAERS Safety Report 11653720 (Version 1)
Quarter: 2015Q4

REPORT INFORMATION
  Report Type: Other
  Country: None (occurrence: US)
  Receive Date: 20151022
  Receipt Date: 20151022
  Transmission Date: 20160304
  Serious: No
  Sender: FDA-Public Use
  Company Number: US-NEXGEN PHARMA, INC.-1043292

PATIENT
  Sex: Female

DRUGS (2)
  1. GABAPENTIN. [Concomitant]
     Active Substance: GABAPENTIN
  2. CAL-MAG 1:1 CAPSULE [Suspect]
     Active Substance: CALCIUM\MAGNESIUM
     Route: 048
     Dates: end: 20150924

REACTIONS (3)
  - Burning sensation [None]
  - Flank pain [Unknown]
  - Feeling hot [None]
